FAERS Safety Report 17096093 (Version 2)
Quarter: 2019Q4

REPORT INFORMATION
  Report Type: Spontaneous
  Country: NL (occurrence: NL)
  Receive Date: 20191202
  Receipt Date: 20191225
  Transmission Date: 20200122
  Serious: Yes (Other)
  Sender: FDA-Public Use
  Company Number: NL-ACCORD-162655

PATIENT
  Age: 77 Year
  Sex: Male
  Weight: 85 kg

DRUGS (20)
  1. TRAVOPROST/TIMOLOL [Concomitant]
     Active Substance: TIMOLOL\TRAVOPROST
     Dosage: STRENGTH: 40 MG / 5 MG / ML,1 X PER DAY 1 DROP IN BOTH EYES
  2. METOPROLOL. [Concomitant]
     Active Substance: METOPROLOL
     Dosage: STRENGTH: 50MG (SUCCINATE),1 X PER DAY 0.5 PIECE
  3. PACLITAXEL. [Concomitant]
     Active Substance: PACLITAXEL
     Dosage: STRENGTH:100MG(NANOPARTICLES) ONCE A DAY 250MG ARE ADMINISTERED IN 30MIN
     Dates: start: 20191021
  4. ACETYLSALICYLIC ACID [Concomitant]
     Active Substance: ASPIRIN
     Dosage: STRENGTH:80 MG,1 TIME A DAY 1 PIECE
  5. CLEMASTINE [Concomitant]
     Active Substance: CLEMASTINE
     Dosage: STRENGTH:1 MG ,2 X 1 PIECE PER DAY
  6. AMLODIPINE [Concomitant]
     Active Substance: AMLODIPINE BESYLATE
     Dosage: STRENGTH:5 MG,1 X DAILY 1 PIECE
  7. MAGNESIUM HYDROXIDE. [Concomitant]
     Active Substance: MAGNESIUM HYDROXIDE
     Dosage: STRENGTH: 724 MG,ANTI-EMETIC BOX 1, DOSAGE ACCORDING TO SCHEDULE
     Dates: start: 20191021
  8. OMEPRAZOLE. [Concomitant]
     Active Substance: OMEPRAZOLE
     Dosage: STRENGTH:20 MG , 1 TIME A DAY 1 PIECE
  9. METOCLOPRAMIDE. [Concomitant]
     Active Substance: METOCLOPRAMIDE
     Dosage: ANTI-EMETIC BOX 1, DOSAGE ACCORDING TO SCHEDULE.STRENGTH:10 MG
     Dates: start: 20191021
  10. ATORVASTATIN [Concomitant]
     Active Substance: ATORVASTATIN
     Dosage: STRENGTH:20 MG,1 X DAILY 1 PIECE
  11. PERINDOPRIL [Concomitant]
     Active Substance: PERINDOPRIL
     Dosage: STRENGTH:4 MG,1 X DAILY 2 PIECE
  12. GEMCITABINE/GEMCITABINE HYDROCHLORIDE [Suspect]
     Active Substance: GEMCITABINE\GEMCITABINE HYDROCHLORIDE
     Indication: PANCREATIC CARCINOMA
     Dosage: STRENGTH: 40 MG/ML, 2000MG/500ML
     Dates: start: 20191021, end: 20191021
  13. BIONAL VISOLIE CAPSULE [Concomitant]
     Dosage: 1 TIME A DAY 1 PIECE
  14. MACROGOL/MACROGOL STEARATE [Concomitant]
     Active Substance: POLYETHYLENE GLYCOLS
     Dosage: 1 TIME PER DAY 1 PIECE
  15. COLECALCIFEROL [Concomitant]
     Active Substance: CHOLECALCIFEROL
     Dosage: STRENGTH:25.000IE,1 TIME PER MONTH 1 PIECE
  16. HYALURON [Concomitant]
     Dosage: CARBON EYE DR 0,15/0,15 MG/ML  ,IN BOTH EYES IF NECESSARY
  17. GLYCERYL TRINITRATE [Concomitant]
     Active Substance: NITROGLYCERIN
     Dosage: STRENGTH: 0,4MG/DO,1 PUFF UNDER THE TONGUE IF NECESSARY
  18. PARACETAMOL [Concomitant]
     Active Substance: ACETAMINOPHEN
     Dosage: STRENGTH:500 MG 3 TIMES PER DAY 2 PIECE
  19. TIMOLOL. [Concomitant]
     Active Substance: TIMOLOL
     Dosage: STRENGTH: 1MG/G,1 X PER DAY 1 DROP IN BOTH EYES
  20. CLARITHROMYCIN. [Concomitant]
     Active Substance: CLARITHROMYCIN
     Dosage: 1 TIME A DAY 1 PIECE

REACTIONS (5)
  - Retching [Recovered/Resolved]
  - Loss of consciousness [Recovered/Resolved]
  - Erythema [Recovered/Resolved]
  - Hypertension [Recovered/Resolved]
  - Salivary hypersecretion [Recovered/Resolved]

NARRATIVE: CASE EVENT DATE: 20191021
